FAERS Safety Report 8114241-3 (Version None)
Quarter: 2012Q1

REPORT INFORMATION
  Report Type: 
  Country: None (occurrence: None)
  Receive Date: 20120206
  Receipt Date: 20120123
  Transmission Date: 20120608
  Serious: Yes (Hospitalization, Other)
  Sender: FDA-Public Use
  Company Number: BR-AMGEN-BRASP2012005969

PATIENT
  Age: 63 Year
  Sex: Female
  Weight: 68 kg

DRUGS (3)
  1. METHOTREXATE [Concomitant]
     Dosage: 2 MG, UNK
  2. ENBREL [Suspect]
     Dosage: 50 MG, WEEKLY
     Dates: start: 20110101, end: 20110901
  3. ENBREL [Suspect]
     Indication: RHEUMATOID ARTHRITIS
     Dosage: 50 MG, 1X/WEEK
     Route: 058
     Dates: start: 20090107, end: 20110401

REACTIONS (4)
  - ACUTE MYOCARDIAL INFARCTION [None]
  - ARTHRITIS [None]
  - HYPERTENSION [None]
  - VENOUS OCCLUSION [None]
